FAERS Safety Report 6146204-1 (Version None)
Quarter: 2009Q2

REPORT INFORMATION
  Report Type: 
  Country: None (occurrence: None)
  Receive Date: 20090407
  Receipt Date: 20090324
  Transmission Date: 20091009
  Serious: Yes (Hospitalization, Other)
  Sender: FDA-Public Use
  Company Number: PHHY2008MX04695

PATIENT
  Age: 77 Year
  Sex: Female

DRUGS (3)
  1. DIOVAN [Suspect]
     Indication: HYPERTENSION
     Dosage: HALF (80 MG) PER DAY
     Route: 048
     Dates: start: 20020101, end: 20080330
  2. LANOXIN [Concomitant]
     Dosage: HALF TABLET PER DAY
     Route: 048
     Dates: start: 20060401
  3. ACETYLSALICYLIC ACID [Concomitant]
     Dosage: ONE TABLET PER DAY
     Route: 048
     Dates: start: 20060401

REACTIONS (3)
  - CEREBRAL THROMBOSIS [None]
  - HAEMORRHOIDS [None]
  - THROMBOSIS [None]
